FAERS Safety Report 9340040 (Version 1)
Quarter: 2013Q2

REPORT INFORMATION
  Report Type: Spontaneous
  Country: IT (occurrence: IT)
  Receive Date: 20130610
  Receipt Date: 20130610
  Transmission Date: 20140414
  Serious: Yes (Hospitalization)
  Sender: FDA-Public Use
  Company Number: IT-BRISTOL-MYERS SQUIBB COMPANY-18987321

PATIENT
  Age: 86 Year
  Sex: Female

DRUGS (5)
  1. COUMADIN TABS 5 MG [Suspect]
     Indication: ATRIAL FIBRILLATION
     Dosage: 1DF:1 UNIT?INTERRUPTED ON 17APR2013
     Route: 048
     Dates: start: 20130101
  2. GARDENALE [Concomitant]
     Dosage: TABS
     Route: 048
  3. LASIX [Concomitant]
     Dosage: TABS
     Route: 048
  4. LANOXIN [Concomitant]
     Route: 048
  5. ZYLORIC [Concomitant]
     Dosage: TABS
     Route: 048

REACTIONS (5)
  - Asthenia [Unknown]
  - Feeling cold [Unknown]
  - Melaena [Unknown]
  - Normochromic normocytic anaemia [Unknown]
  - Overdose [Unknown]
